FAERS Safety Report 7701953-6 (Version None)
Quarter: 2011Q3

REPORT INFORMATION
  Report Type: 
  Country: None (occurrence: None)
  Receive Date: 20110822
  Receipt Date: 20110810
  Transmission Date: 20111222
  Serious: Yes (Other)
  Sender: FDA-Public Use
  Company Number: PHHY2010US83478

PATIENT
  Sex: Male

DRUGS (9)
  1. PRAVASTATIN [Concomitant]
     Dosage: 20 MG, UNK
  2. POTASSIUM ACETATE [Concomitant]
     Dosage: 20 MG, UNK
  3. FUROSEMIDE [Concomitant]
     Dosage: 20 MG, UNK
  4. BENICAR [Concomitant]
     Dosage: 20 MG, UNK
  5. GLIPIZIDE [Concomitant]
  6. CARVEDILOL [Concomitant]
     Indication: CARDIAC FAILURE
     Dosage: 25 MG, BID
  7. GLEEVEC [Suspect]
     Indication: CHRONIC MYELOID LEUKAEMIA
     Dosage: 100 MG TID
     Route: 048
     Dates: start: 20091101
  8. AMLODIPINE BESYLATE [Concomitant]
     Dosage: 5 MG, UNK
  9. SIMVASTATIN [Concomitant]

REACTIONS (1)
  - BLOOD BLISTER [None]
